FAERS Safety Report 8585109-3 (Version None)
Quarter: 2012Q3

REPORT INFORMATION
  Report Type: 
  Country: None (occurrence: None)
  Receive Date: 20120810
  Receipt Date: 20120803
  Transmission Date: 20120928
  Serious: Yes (Other)
  Sender: FDA-Public Use
  Company Number: BR-ALLERGAN-1208470US

PATIENT
  Age: 60 Year
  Sex: Male

DRUGS (1)
  1. COMBIGAN [Suspect]
     Indication: GLAUCOMA
     Dosage: 1 DROP PER EYE TWICE PER DAY
     Route: 047
     Dates: start: 20120501

REACTIONS (3)
  - LOSS OF CONSCIOUSNESS [None]
  - HALLUCINATION, VISUAL [None]
  - MEMORY IMPAIRMENT [None]
